FAERS Safety Report 8677652 (Version 3)
Quarter: 2013Q3

REPORT INFORMATION
  Report Type: Spontaneous
  Country: DK (occurrence: DK)
  Receive Date: 20120723
  Receipt Date: 20130703
  Transmission Date: 20140515
  Serious: Yes (Other)
  Sender: FDA-Public Use
  Company Number: DK-PFIZER INC-2012167313

PATIENT
  Sex: Female

DRUGS (1)
  1. CYTOTEC [Suspect]
     Dosage: 25 UG, SINGLE
     Dates: start: 201205

REACTIONS (3)
  - Off label use [Unknown]
  - Premature separation of placenta [Unknown]
  - Uterine haemorrhage [Unknown]
